FAERS Safety Report 9814674 (Version 2)
Quarter: 2014Q1

REPORT INFORMATION
  Report Type: Spontaneous
  Country: AU (occurrence: AU)
  Receive Date: 20140113
  Receipt Date: 20140113
  Transmission Date: 20141002
  Serious: Yes (Death, Other)
  Sender: FDA-Public Use
  Company Number: PHHY2013AU121029

PATIENT
  Sex: Female

DRUGS (2)
  1. FEMARA [Suspect]
     Indication: BREAST CANCER METASTATIC
     Dosage: UNK UKN, UNK
     Route: 048
     Dates: start: 201201, end: 201210
  2. TAMOXIFEN [Suspect]
     Indication: ADJUVANT THERAPY
     Dosage: 20 MG, DAILY
     Route: 048
     Dates: start: 201109, end: 201201

REACTIONS (5)
  - Breast cancer metastatic [Fatal]
  - Malignant neoplasm progression [Fatal]
  - Hepatic failure [Fatal]
  - Jaundice [Fatal]
  - Coma hepatic [Unknown]
